FAERS Safety Report 13450001 (Version 1)
Quarter: 2017Q2

REPORT INFORMATION
  Report Type: Spontaneous
  Country: US (occurrence: US)
  Receive Date: 20170417
  Receipt Date: 20170417
  Transmission Date: 20170830
  Serious: Yes (Other)
  Sender: FDA-Public Use
  Company Number: US-BION-20160644

PATIENT
  Age: 66 Year
  Weight: 86.18 kg

DRUGS (8)
  1. ASPIRIN REGIMEN BAYER [Suspect]
     Active Substance: ASPIRIN
     Dosage: TWO A DAY
  2. ALEVE [Suspect]
     Active Substance: NAPROXEN SODIUM
     Indication: ANALGESIC THERAPY
     Dosage: ONE OR TWO EVERY ONCE IN A WHILE
  3. LYRICA [Suspect]
     Active Substance: PREGABALIN
  4. UNSPECIFIED DEPRESSION PILLS [Concomitant]
  5. TYLENOL [Suspect]
     Active Substance: ACETAMINOPHEN
     Indication: ANALGESIC THERAPY
     Dosage: ONE TO TWO EVERY NOW AND THEN AS NEEDED
  6. OXYCONTIN [Concomitant]
     Active Substance: OXYCODONE HYDROCHLORIDE
     Indication: ANALGESIC THERAPY
     Dosage: ONE TO TWO A DAY AS NEEDED
  7. ALEVE [Suspect]
     Active Substance: NAPROXEN SODIUM
     Indication: ANALGESIC THERAPY
     Dosage: ONE TO TWO 220MG AS NEEDED
     Route: 048
  8. NEURONTIN [Suspect]
     Active Substance: GABAPENTIN
     Dosage: 300MG THREE TIMES A DAY

REACTIONS (2)
  - Drug ineffective [Unknown]
  - Hypertension [Unknown]
